FAERS Safety Report 10676955 (Version 2)
Quarter: 2015Q1

REPORT INFORMATION
  Report Type: Spontaneous
  Country: US (occurrence: US)
  Receive Date: 20141226
  Receipt Date: 20150130
  Transmission Date: 20150720
  Serious: Yes (Other)
  Sender: FDA-Public Use
  Company Number: US-PFIZER INC-2014350650

PATIENT
  Age: 89 Year
  Sex: Female

DRUGS (1)
  1. TESSALON [Suspect]
     Active Substance: BENZONATATE
     Dosage: 100 MG, 3X/DAY

REACTIONS (3)
  - Pneumonia [Unknown]
  - Chronic obstructive pulmonary disease [Unknown]
  - Cough [Unknown]
